FAERS Safety Report 21321562 (Version 3)
Quarter: 2022Q4

REPORT INFORMATION
  Report Type: Spontaneous
  Country: US (occurrence: US)
  Receive Date: 20220912
  Receipt Date: 20221117
  Transmission Date: 20230113
  Serious: Yes (Other)
  Sender: FDA-Public Use
  Company Number: US-NOVOPROD-956788

PATIENT
  Age: 46 Year
  Sex: Female
  Weight: 91.625 kg

DRUGS (3)
  1. OZEMPIC [Suspect]
     Active Substance: SEMAGLUTIDE
     Indication: Overweight
     Dosage: 0.5 MG
     Route: 058
     Dates: start: 2022, end: 202208
  2. OZEMPIC [Suspect]
     Active Substance: SEMAGLUTIDE
     Indication: Glucose tolerance impaired
     Dosage: 0.25 MG
     Route: 058
     Dates: start: 20220526, end: 2022
  3. PROGESTERONE [Concomitant]
     Active Substance: PROGESTERONE
     Indication: Product used for unknown indication
     Dosage: 50 MG, QD

REACTIONS (4)
  - Thyroiditis [Recovering/Resolving]
  - Thyroid mass [Recovering/Resolving]
  - Off label use [Recovered/Resolved]
  - Dyspnoea [Recovered/Resolved]

NARRATIVE: CASE EVENT DATE: 20220101
